FAERS Safety Report 6061991-9 (Version None)
Quarter: 2009Q1

REPORT INFORMATION
  Report Type: 
  Country: None (occurrence: None)
  Receive Date: 20090202
  Receipt Date: 20090121
  Transmission Date: 20090719
  Serious: Yes (Other)
  Sender: FDA-Public Use
  Company Number: GB-B.I. PHARMACEUTICALS,INC./RIDGEFIELD-2008-DE-06699GD

PATIENT
  Age: 29 Year
  Sex: Female

DRUGS (6)
  1. NEVIRAPINE [Suspect]
     Indication: HIV INFECTION
     Dosage: 400MG
  2. NORDETTE-28 [Suspect]
     Indication: DYSMENORRHOEA
     Route: 048
     Dates: end: 20040820
  3. NORDETTE-28 [Suspect]
     Indication: MENORRHAGIA
  4. ETHINYL ESTRADIOL AND LEVONORGESTREL [Suspect]
     Indication: MENORRHAGIA
     Route: 048
     Dates: start: 20040428
  5. COMBIVIR [Concomitant]
     Indication: HIV INFECTION
     Dosage: 600 MG ZIDOVUDINE/300 MG LAMIVUDINE
  6. IRON [Concomitant]
     Indication: ANAEMIA
     Route: 048

REACTIONS (3)
  - ANAEMIA [None]
  - DRUG INTERACTION [None]
  - MENORRHAGIA [None]
